FAERS Safety Report 4381332-2 (Version None)
Quarter: 2004Q2

REPORT INFORMATION
  Report Type: 
  Country: None (occurrence: None)
  Receive Date: 20040616
  Receipt Date: 20040601
  Transmission Date: 20050107
  Serious: Yes (Death)
  Sender: FDA-Public Use
  Company Number: US_0406103429

PATIENT
  Age: 27 Year

DRUGS (2)
  1. OLANZAPINE [Suspect]
  2. ETHANOL [Concomitant]

REACTIONS (2)
  - DRUG ABUSER [None]
  - DRUG TOXICITY [None]
